FAERS Safety Report 5856466-3 (Version None)
Quarter: 2008Q3

REPORT INFORMATION
  Report Type: 
  Country: None (occurrence: None)
  Receive Date: 20080825
  Receipt Date: 20080516
  Transmission Date: 20090109
  Serious: No
  Sender: FDA-Public Use
  Company Number: A0728299A

PATIENT
  Age: 75 Year
  Sex: Female

DRUGS (5)
  1. VERAMYST [Suspect]
     Indication: RESPIRATION ABNORMAL
     Dosage: 4SPR TWICE PER DAY
     Route: 045
     Dates: start: 20080501
  2. RESTASIS [Concomitant]
  3. HYDROCHLOROTHIAZIDE [Concomitant]
  4. AZOPT [Concomitant]
  5. ALPHAGAN [Concomitant]

REACTIONS (2)
  - INSOMNIA [None]
  - OVERDOSE [None]
